FAERS Safety Report 25022740 (Version 2)
Quarter: 2025Q1

REPORT INFORMATION
  Report Type: Report from Study
  Country: CN (occurrence: CN)
  Receive Date: 20250228
  Receipt Date: 20250307
  Transmission Date: 20250408
  Serious: No
  Sender: ALEXION PHARMACEUTICALS
  Company Number: CN-ASTRAZENECA-202501GLO029921CN

PATIENT

DRUGS (6)
  1. OLAPARIB [Suspect]
     Active Substance: OLAPARIB
     Indication: Prostate cancer
     Dosage: 300 MILLIGRAM, QD
  2. RIVAROXABAN [Concomitant]
     Active Substance: RIVAROXABAN
     Indication: Myocardial infarction
  3. EMPAGLIFLOZIN [Concomitant]
     Active Substance: EMPAGLIFLOZIN
     Indication: Hypocalcaemia
  4. TOLTERODINE TARTRATE [Concomitant]
     Active Substance: TOLTERODINE TARTRATE
     Indication: Prostate cancer
  5. TAMSULOSIN HYDROCHLORIDE [Concomitant]
     Active Substance: TAMSULOSIN HYDROCHLORIDE
     Indication: Prostate cancer
  6. POTASSIUM CHLORIDE [Concomitant]
     Active Substance: POTASSIUM CHLORIDE
     Indication: Hypocalcaemia
     Route: 065

REACTIONS (1)
  - No adverse event [Unknown]
